FAERS Safety Report 21843756 (Version 1)
Quarter: 2023Q1

REPORT INFORMATION
  Report Type: Spontaneous
  Country: US (occurrence: None)
  Receive Date: 20230109
  Receipt Date: 20230109
  Transmission Date: 20230417
  Serious: No
  Sender: FDA-Public Use
  Company Number: None

PATIENT
  Age: 53 Year
  Sex: Female

DRUGS (2)
  1. OLUMIANT [Suspect]
     Active Substance: BARICITINIB
     Indication: Alopecia areata
     Dosage: FREQUENCY : DAILY;?
     Route: 048
     Dates: start: 202212
  2. OLUMIANT [Suspect]
     Active Substance: BARICITINIB
     Indication: Alopecia areata

REACTIONS (2)
  - Pharyngitis streptococcal [None]
  - Eating disorder [None]
